FAERS Safety Report 9072218 (Version 1)
Quarter: 2013Q1

REPORT INFORMATION
  Report Type: Spontaneous
  Country: US (occurrence: US)
  Receive Date: 20130206
  Receipt Date: 20130206
  Transmission Date: 20140127
  Serious: No
  Sender: FDA-Public Use
  Company Number: US-ALLERGAN-1216628US

PATIENT
  Age: 75 Year
  Sex: Female

DRUGS (12)
  1. RESTASIS? [Suspect]
     Indication: DRY EYE
     Dosage: 2 GTT, BID
     Route: 047
     Dates: start: 20121025
  2. LOVASTATIN [Concomitant]
     Indication: BLOOD CHOLESTEROL INCREASED
     Dosage: 40 MG, QPM
     Route: 048
  3. FOSAMAX [Concomitant]
     Indication: OSTEOPOROSIS
     Dosage: 70 MG, Q WEEK
     Route: 048
  4. CALCIUM [Concomitant]
     Indication: SUPPLEMENTATION THERAPY
     Dosage: 600 MG, QD
     Route: 048
  5. VITAMIN D /00107901/ [Concomitant]
     Indication: SUPPLEMENTATION THERAPY
     Dosage: 100 MG, QD
     Route: 048
  6. FOCUS MACULAR PRO [Concomitant]
     Indication: MACULAR DEGENERATION
     Dosage: UNK, BID
     Route: 048
  7. TRAMADOL [Concomitant]
     Indication: ARTHRITIS
     Dosage: 50 MG, QPM
     Route: 048
  8. FOLIC ACID [Concomitant]
     Indication: SUPPLEMENTATION THERAPY
     Dosage: 1 MG, QD
     Route: 048
  9. METHOTREXATE [Concomitant]
     Indication: ARTHRITIS
     Dosage: 7.5 MG, Q WEEK
     Route: 048
  10. SYSTANE BALANCE EYE DROPS [Concomitant]
     Indication: DRY EYE
     Dosage: 2 GTT, BID
     Route: 047
  11. REFRESH TEARS [Concomitant]
     Indication: DRY EYE
     Dosage: 2 GTT, PRN
     Route: 047
  12. INJECTIONS NOS [Concomitant]
     Indication: MACULAR DEGENERATION

REACTIONS (4)
  - Incorrect storage of drug [Unknown]
  - Scleral hyperaemia [Not Recovered/Not Resolved]
  - Eye irritation [Recovered/Resolved]
  - Ocular hyperaemia [Unknown]
